FAERS Safety Report 8391392-X (Version None)
Quarter: 2012Q2

REPORT INFORMATION
  Report Type: 
  Country: None (occurrence: None)
  Receive Date: 20120529
  Receipt Date: 20120518
  Transmission Date: 20120825
  Serious: Yes (Hospitalization)
  Sender: FDA-Public Use
  Company Number: TR-SANOFI-AVENTIS-2012SA033564

PATIENT
  Age: 66 Year
  Sex: Female
  Weight: 70 kg

DRUGS (5)
  1. DOCETAXEL [Suspect]
     Indication: NON-SMALL CELL LUNG CANCER STAGE IV
     Route: 041
     Dates: start: 20120420, end: 20120420
  2. TERGURIDE HYDROGENMALEATE [Concomitant]
     Indication: PREMEDICATION
     Dates: start: 20120420, end: 20120420
  3. LANSOPRAZOLE [Concomitant]
     Indication: PREMEDICATION
     Dates: start: 20120419, end: 20120421
  4. BLINDED THERAPY [Suspect]
     Indication: NON-SMALL CELL LUNG CANCER STAGE IV
     Dosage: INFUSED OVER 60 MINUTES
     Route: 042
     Dates: start: 20120420, end: 20120420
  5. DEXAMETHASONE [Concomitant]
     Indication: PREMEDICATION
     Dates: start: 20120419, end: 20120420

REACTIONS (2)
  - HYPONATRAEMIA [None]
  - CONFUSIONAL STATE [None]
